FAERS Safety Report 8612953-6 (Version None)
Quarter: 2012Q3

REPORT INFORMATION
  Report Type: 
  Country: None (occurrence: None)
  Receive Date: 20120822
  Receipt Date: 20120516
  Transmission Date: 20120928
  Serious: No
  Sender: FDA-Public Use
  Company Number: US-ALLERGAN-1206939US

PATIENT
  Age: 73 Year
  Sex: Female

DRUGS (2)
  1. SANCTURA XR [Suspect]
     Dosage: 60 UNK, UNK
     Route: 048
  2. SANCTURA XR [Suspect]
     Indication: INCONTINENCE
     Dosage: 60 MG, UNK
     Route: 048
     Dates: start: 20120401

REACTIONS (1)
  - URINARY INCONTINENCE [None]
